FAERS Safety Report 22383038 (Version 1)
Quarter: 2023Q2

REPORT INFORMATION
  Report Type: Spontaneous
  Country: IE (occurrence: IE)
  Receive Date: 20230530
  Receipt Date: 20230530
  Transmission Date: 20230722
  Serious: Yes (Other)
  Sender: FDA-Public Use
  Company Number: IE-009507513-2305IRL007926

PATIENT
  Age: 77 Year
  Sex: Female

DRUGS (3)
  1. PEMBROLIZUMAB [Suspect]
     Active Substance: PEMBROLIZUMAB
     Indication: Lung adenocarcinoma stage IV
     Dosage: UNK, 2 CYCLES
  2. CARBOPLATIN [Concomitant]
     Active Substance: CARBOPLATIN
     Indication: Lung adenocarcinoma stage IV
     Dosage: UNK, 3 CYCLES
  3. PEMETREXED [Concomitant]
     Active Substance: PEMETREXED
     Indication: Lung adenocarcinoma stage IV
     Dosage: UNK, 3 CYCLES

REACTIONS (4)
  - Encephalitis brain stem [Recovered/Resolved with Sequelae]
  - Demyelination [Unknown]
  - Immune-mediated encephalitis [Recovered/Resolved with Sequelae]
  - Immune-mediated hypothyroidism [Unknown]
